FAERS Safety Report 9809222 (Version 2)
Quarter: 2014Q1

REPORT INFORMATION
  Report Type: Spontaneous
  Country: US (occurrence: US)
  Receive Date: 20140110
  Receipt Date: 20140211
  Transmission Date: 20141002
  Serious: Yes (Other)
  Sender: FDA-Public Use
  Company Number: US-BAXTER-2014BAX000659

PATIENT
  Sex: 0

DRUGS (1)
  1. ARTISS [Suspect]
     Indication: FACE LIFT
     Route: 061

REACTIONS (2)
  - Necrosis [Unknown]
  - Product quality issue [Unknown]
